FAERS Safety Report 6377896-X (Version None)
Quarter: 2009Q3

REPORT INFORMATION
  Report Type: 
  Country: None (occurrence: None)
  Receive Date: 20090925
  Receipt Date: 20090915
  Transmission Date: 20100115
  Serious: Yes (Other)
  Sender: FDA-Public Use
  Company Number: PHEH2009US10956

PATIENT
  Sex: Female

DRUGS (2)
  1. DIOVAN [Suspect]
     Dosage: 80 MG, UNK
     Dates: start: 20040101
  2. PRAVASTATIN [Concomitant]

REACTIONS (3)
  - DIZZINESS [None]
  - DRY MOUTH [None]
  - FALL [None]
